FAERS Safety Report 24412813 (Version 1)
Quarter: 2024Q4

REPORT INFORMATION
  Report Type: Spontaneous
  Country: US (occurrence: US)
  Receive Date: 20241008
  Receipt Date: 20241008
  Transmission Date: 20250114
  Serious: Yes (Other)
  Sender: SANOFI AVENTIS
  Company Number: US-SA-2024SA288319

PATIENT
  Age: 62 Year
  Sex: Female

DRUGS (1)
  1. DUPIXENT [Suspect]
     Active Substance: DUPILUMAB
     Dosage: 1 DF (FREQUENCY: OTHER)
     Route: 058

REACTIONS (5)
  - Cataract [Unknown]
  - Visual impairment [Unknown]
  - Eye pain [Unknown]
  - Dry eye [Unknown]
  - Eye pruritus [Unknown]
